FAERS Safety Report 8520924-3 (Version None)
Quarter: 2012Q3

REPORT INFORMATION
  Report Type: 
  Country: None (occurrence: None)
  Receive Date: 20120719
  Receipt Date: 20120713
  Transmission Date: 20120928
  Serious: No
  Sender: FDA-Public Use
  Company Number: US-PFIZER INC-2012153827

PATIENT
  Sex: Female
  Weight: 65 kg

DRUGS (8)
  1. XANAX [Concomitant]
     Dosage: UNK
  2. ESI [Concomitant]
     Dosage: UNK
  3. ARTHROTEC [Suspect]
     Indication: ARTHRITIS
     Dosage: 75 MG/200 MCG, 2X/DAY
     Route: 048
     Dates: start: 20110101
  4. ULTRAM [Concomitant]
     Dosage: UNK
  5. SIMVASTATIN [Concomitant]
     Dosage: UNK
  6. CARDIAZEM (DILTIAZEM HYDROCHLORIDE) [Concomitant]
     Dosage: UNK
  7. DEXILANT [Concomitant]
     Dosage: UNK
  8. BENTYL [Concomitant]
     Dosage: UNK

REACTIONS (1)
  - PETECHIAE [None]
